FAERS Safety Report 22040241 (Version 3)
Quarter: 2023Q2

REPORT INFORMATION
  Report Type: Spontaneous
  Country: US (occurrence: US)
  Receive Date: 20230227
  Receipt Date: 20230517
  Transmission Date: 20230722
  Serious: Yes (Death)
  Sender: FDA-Public Use
  Company Number: US-PFIZER INC-PV202300036711

PATIENT
  Age: 84 Year
  Sex: Female

DRUGS (1)
  1. IBRANCE [Suspect]
     Active Substance: PALBOCICLIB
     Dosage: 125 MG, CYCLIC (ONCE DAILY W/ OR W/O FOOD FOR 21 DAYS ON + 7 DAYS OFF)
     Route: 048

REACTIONS (3)
  - Fall [Fatal]
  - Head injury [Fatal]
  - Neoplasm progression [Fatal]
